FAERS Safety Report 8449526-4 (Version None)
Quarter: 2012Q2

REPORT INFORMATION
  Report Type: 
  Country: None (occurrence: None)
  Receive Date: 20120619
  Receipt Date: 20120606
  Transmission Date: 20120825
  Serious: Yes (Other)
  Sender: FDA-Public Use
  Company Number: BR-MYLANLABS-2012S1011783

PATIENT
  Age: 18 Year
  Sex: Male

DRUGS (2)
  1. PHENOBARBITAL TAB [Concomitant]
     Indication: EPILEPSY
     Route: 065
  2. WARFARIN SODIUM [Suspect]
     Indication: ANTIPHOSPHOLIPID SYNDROME
     Dosage: 20 MG/DAY
     Route: 065

REACTIONS (2)
  - FOOD INTERACTION [None]
  - INTERNATIONAL NORMALISED RATIO DECREASED [None]
